FAERS Safety Report 22142105 (Version 1)
Quarter: 2023Q1

REPORT INFORMATION
  Report Type: Spontaneous
  Country: NL (occurrence: NL)
  Receive Date: 20230327
  Receipt Date: 20230327
  Transmission Date: 20230418
  Serious: Yes (Life-Threatening)
  Sender: FDA-Public Use
  Company Number: None

PATIENT
  Sex: Male

DRUGS (1)
  1. GLIMEPIRIDE [Suspect]
     Active Substance: GLIMEPIRIDE
     Indication: Type 2 diabetes mellitus
     Dosage: 4 MILLIGRAM DAILY; 1DD1 4MG, GLIMEPIRIDE TABLET 4MG / BRAND NAME NOT SPECIFIED
     Route: 065
     Dates: start: 20170101, end: 20221223

REACTIONS (1)
  - Hypoglycaemia [Recovered/Resolved]
